FAERS Safety Report 13766949 (Version 1)
Quarter: 2017Q3

REPORT INFORMATION
  Report Type: Spontaneous
  Country: TR (occurrence: TR)
  Receive Date: 20170719
  Receipt Date: 20170719
  Transmission Date: 20171127
  Serious: Yes (Congenital Anomaly)
  Sender: FDA-Public Use
  Company Number: TR-PERRIGO-17TR025150

PATIENT
  Age: 40 Week

DRUGS (1)
  1. BROMOCRIPTINE MESYLATE [Suspect]
     Active Substance: BROMOCRIPTINE MESYLATE
     Indication: FOETAL EXPOSURE DURING PREGNANCY
     Dosage: UNK
     Route: 064

REACTIONS (2)
  - Foetal exposure during pregnancy [Recovered/Resolved]
  - Trisomy 21 [Not Recovered/Not Resolved]
